FAERS Safety Report 14215765 (Version 1)
Quarter: 2017Q4

REPORT INFORMATION
  Report Type: Spontaneous
  Country: GB (occurrence: GB)
  Receive Date: 20171122
  Receipt Date: 20171122
  Transmission Date: 20180321
  Serious: Yes (Other)
  Sender: FDA-Public Use
  Company Number: GB-TERSERA THERAPEUTICS, LLC-2034921

PATIENT

DRUGS (1)
  1. ZOLADEX [Suspect]
     Active Substance: GOSERELIN ACETATE
     Indication: PRODUCT USED FOR UNKNOWN INDICATION
     Route: 058
     Dates: start: 20170919

REACTIONS (3)
  - Product quality issue [Unknown]
  - Administration site discomfort [Unknown]
  - Migration of implanted drug [Unknown]

NARRATIVE: CASE EVENT DATE: 20170919
